FAERS Safety Report 7535357-6 (Version None)
Quarter: 2011Q2

REPORT INFORMATION
  Report Type: 
  Country: None (occurrence: None)
  Receive Date: 20110609
  Receipt Date: 20080416
  Transmission Date: 20111010
  Serious: Yes (Other)
  Sender: FDA-Public Use
  Company Number: PHHY2008AU05086

PATIENT
  Sex: Female

DRUGS (9)
  1. VALPROATE SODIUM [Concomitant]
     Dosage: 900 MG, UNK
  2. DEPO-PROVERA [Concomitant]
     Dosage: IMI, 3/12 LY
  3. CLOZAPINE [Suspect]
     Dosage: 900 MG, UNK
     Dates: start: 20070501, end: 20070822
  4. CLOZAPINE [Suspect]
     Indication: SCHIZOPHRENIA
     Dosage: 500 MG, UNK
     Route: 048
     Dates: start: 20070306, end: 20070403
  5. CLOZAPINE [Suspect]
     Dosage: 500 MG, UNK
     Dates: start: 20080326
  6. CLOZAPINE [Suspect]
     Dosage: 250 MG, UNK
     Dates: start: 20080326
  7. VALPROATE SODIUM [Concomitant]
     Dosage: 700 MG, UNK
  8. CLOZAPINE [Suspect]
     Dosage: 800 MG, UNK
     Dates: start: 20070918, end: 20080226
  9. CLOZAPINE [Suspect]
     Dosage: 300 MG, UNK
     Dates: start: 20070306, end: 20070403

REACTIONS (1)
  - ELECTROCARDIOGRAM QT PROLONGED [None]
